FAERS Safety Report 4415088-1 (Version None)
Quarter: 2004Q3

REPORT INFORMATION
  Report Type: 
  Country: None (occurrence: None)
  Receive Date: 20040723
  Receipt Date: 20040714
  Transmission Date: 20050211
  Serious: Yes (Hospitalization, Disabling)
  Sender: FDA-Public Use
  Company Number: CART-10279

PATIENT
  Age: 22 Year
  Sex: Male
  Weight: 145.151 kg

DRUGS (3)
  1. CARTICEL [Suspect]
     Indication: ARTHROPATHY
     Dosage: 1 NA ONCE IS
     Dates: start: 20020508, end: 20020508
  2. VICODIN [Concomitant]
  3. ULTRAM [Concomitant]

REACTIONS (5)
  - ARTHRALGIA [None]
  - FAILURE OF IMPLANT [None]
  - GRAFT COMPLICATION [None]
  - LOCALISED OSTEOARTHRITIS [None]
  - PAIN [None]
